FAERS Safety Report 24028885 (Version 4)
Quarter: 2024Q4

REPORT INFORMATION
  Report Type: Spontaneous
  Country: US (occurrence: US)
  Receive Date: 20240628
  Receipt Date: 20241203
  Transmission Date: 20250115
  Serious: Yes (Life-Threatening)
  Sender: NOVARTIS
  Company Number: US-002147023-NVSC2024US133478

PATIENT
  Sex: Male

DRUGS (4)
  1. SANDOSTATIN LAR DEPOT [Suspect]
     Active Substance: OCTREOTIDE ACETATE
     Indication: Product used for unknown indication
     Dosage: 20 MG, QMO
     Route: 065
  2. SANDOSTATIN LAR DEPOT [Suspect]
     Active Substance: OCTREOTIDE ACETATE
  3. SANDOSTATIN LAR DEPOT [Suspect]
     Active Substance: OCTREOTIDE ACETATE
  4. WARFARIN [Suspect]
     Active Substance: WARFARIN
     Indication: Anticoagulant therapy
     Dosage: UNK
     Route: 065

REACTIONS (6)
  - Tremor [Unknown]
  - Device defective [Unknown]
  - Device occlusion [Unknown]
  - Product dose omission issue [Unknown]
  - Device issue [Unknown]
  - Pain [Unknown]
